FAERS Safety Report 4641451-X (Version None)
Quarter: 2005Q2

REPORT INFORMATION
  Report Type: 
  Country: None (occurrence: None)
  Receive Date: 20050420
  Receipt Date: 20050420
  Transmission Date: 20051028
  Serious: No
  Sender: FDA-Public Use
  Company Number: None

PATIENT
  Age: 17 Year
  Sex: Female

DRUGS (1)
  1. ACETADOTE [Suspect]
     Indication: OVERDOSE
     Dosage: 4000 MG/ 500 ONCE INTRAVENOUS
     Route: 042
     Dates: start: 20050416, end: 20050416

REACTIONS (1)
  - RASH ERYTHEMATOUS [None]
